FAERS Safety Report 7457598-9 (Version None)
Quarter: 2011Q1

REPORT INFORMATION
  Report Type: 
  Country: None (occurrence: None)
  Receive Date: 20110302
  Receipt Date: 20100821
  Transmission Date: 20110831
  Serious: Yes (Other)
  Sender: FDA-Public Use
  Company Number: 163-21880-10082642

PATIENT
  Age: 77 Year
  Sex: Male

DRUGS (3)
  1. REVLIMID [Suspect]
     Indication: MULTIPLE MYELOMA
     Dosage: 25 MG, EVERY DAY FOR 21 DAYS, PO
     Route: 048
     Dates: start: 20090113
  2. ZOMETA [Concomitant]
  3. DEXAMETHASONE [Concomitant]

REACTIONS (1)
  - OSTEONECROSIS OF JAW [None]
